FAERS Safety Report 8325046 (Version 2)
Quarter: 2013Q1

REPORT INFORMATION
  Report Type: Spontaneous
  Country: US (occurrence: US)
  Receive Date: 20120106
  Receipt Date: 20130124
  Transmission Date: 20140127
  Serious: Yes (Other)
  Sender: FDA-Public Use
  Company Number: US-BAYER-2012-000095

PATIENT
  Age: 19 Year
  Sex: Female

DRUGS (6)
  1. YAZ [Suspect]
     Dosage: UNK
     Dates: start: 200507, end: 200903
  2. OCELLA [Suspect]
     Dosage: UNK
     Dates: start: 200903, end: 200908
  3. ZOLPIDEM [Concomitant]
     Dosage: 10 MG, UNK
     Route: 048
     Dates: start: 20090619
  4. AMLODIPINE BESYLATE [Concomitant]
     Dosage: UNK
     Route: 048
     Dates: start: 20090811
  5. PROMETHAZINE [Concomitant]
     Dosage: 12.5 MG, UNK
     Route: 048
     Dates: start: 20090811
  6. HYDROCODONE W/APAP [Concomitant]
     Dosage: UNK
     Route: 048
     Dates: start: 20090811

REACTIONS (1)
  - Thrombosis [None]
